FAERS Safety Report 7956454-7 (Version None)
Quarter: 2011Q4

REPORT INFORMATION
  Report Type: 
  Country: None (occurrence: None)
  Receive Date: 20111205
  Receipt Date: 20111121
  Transmission Date: 20120403
  Serious: Yes (Other)
  Sender: FDA-Public Use
  Company Number: US-ASTELLAS-2011US007818

PATIENT
  Age: 18 Year
  Sex: Female

DRUGS (2)
  1. RAPAMUNE [Suspect]
     Indication: HEART TRANSPLANT
     Dosage: 12 MG, Q8 HOURS
     Route: 065
  2. PROGRAF [Suspect]
     Indication: HEART TRANSPLANT
     Dosage: UNK
     Route: 065

REACTIONS (3)
  - HEART TRANSPLANT [None]
  - IMMUNOSUPPRESSANT DRUG LEVEL DECREASED [None]
  - CORONARY ARTERY DISEASE [None]
